FAERS Safety Report 23705150 (Version 1)
Quarter: 2024Q2

REPORT INFORMATION
  Report Type: Report from Study
  Country: CN (occurrence: CN)
  Receive Date: 20240404
  Receipt Date: 20240404
  Transmission Date: 20240715
  Serious: Yes (Other)
  Sender: FDA-Public Use
  Company Number: CN-SUN PHARMACEUTICAL INDUSTRIES LTD-2024R1-439475

PATIENT

DRUGS (2)
  1. BUDESONIDE [Suspect]
     Active Substance: BUDESONIDE
     Indication: Pneumonia mycoplasmal
     Dosage: UNK
     Route: 065
  2. AMBROXOL [Suspect]
     Active Substance: AMBROXOL
     Indication: Pneumonia mycoplasmal
     Dosage: UNK
     Route: 065

REACTIONS (1)
  - Atelectasis [Unknown]
